FAERS Safety Report 10206096 (Version 1)
Quarter: 2014Q2

REPORT INFORMATION
  Report Type: Spontaneous
  Country: CN (occurrence: None)
  Receive Date: 20140527
  Receipt Date: 20140527
  Transmission Date: 20141212
  Serious: Yes (Death, Other)
  Sender: FDA-Public Use
  Company Number: CN-JNJFOC-20120713547

PATIENT
  Age: 58 Year
  Sex: Male

DRUGS (1)
  1. DACOGEN (DECITABINE) LYOPHILIZED POWDER [Suspect]
     Indication: MYELOID LEUKAEMIA
     Route: 041
     Dates: start: 20120724, end: 20120724

REACTIONS (4)
  - Pyrexia [None]
  - White blood cell count increased [None]
  - Myeloid leukaemia [None]
  - Disease progression [None]
